FAERS Safety Report 23775048 (Version 1)
Quarter: 2024Q2

REPORT INFORMATION
  Report Type: Spontaneous
  Country: US (occurrence: US)
  Receive Date: 20240423
  Receipt Date: 20240423
  Transmission Date: 20240717
  Serious: No
  Sender: FDA-Public Use
  Company Number: US-MYLANLABS-2024M1031357

PATIENT
  Age: 61 Year
  Sex: Female

DRUGS (1)
  1. TYRVAYA [Suspect]
     Active Substance: VARENICLINE TARTRATE
     Indication: Dry eye
     Dosage: UNK, BID (ONE SPRAY EACH NOSTRIL TWICE A DAY 12 HOURS APART, 7:30 AM AND 7:30 PM)
     Route: 045
     Dates: start: 20240330, end: 20240402

REACTIONS (3)
  - Dry eye [Unknown]
  - Intranasal hypoaesthesia [Recovered/Resolved]
  - Sneezing [Recovered/Resolved]

NARRATIVE: CASE EVENT DATE: 20240401
